FAERS Safety Report 4570372-6 (Version None)
Quarter: 2005Q1

REPORT INFORMATION
  Report Type: 
  Country: None (occurrence: None)
  Receive Date: 20050127
  Receipt Date: 20050127
  Transmission Date: 20050727
  Serious: No
  Sender: FDA-Public Use
  Company Number: None

PATIENT
  Age: 94 Year
  Sex: Female
  Weight: 60.781 kg

DRUGS (4)
  1. COMPOUNDED BUDESONIDE [Suspect]
     Indication: ASTHMA
     Dosage: 0.5 MG / 2.5 ML
     Dates: start: 20040201
  2. COMPOUNDED BUDESONIDE [Suspect]
     Indication: ASTHMA
     Dosage: 0.5 MG / 2.5 ML
     Dates: start: 20040501
  3. COMPOUNDED BUDESONIDE [Suspect]
     Indication: ASTHMA
     Dosage: 0.5 MG / 2.5 ML
     Dates: start: 20040601
  4. COUMADIN [Concomitant]

REACTIONS (4)
  - AGONAL RHYTHM [None]
  - CREPITATIONS [None]
  - STRIDOR [None]
  - WHEEZING [None]
